FAERS Safety Report 17208461 (Version 3)
Quarter: 2020Q4

REPORT INFORMATION
  Report Type: Report from Study
  Country: FR (occurrence: FR)
  Receive Date: 20191227
  Receipt Date: 20201112
  Transmission Date: 20210113
  Serious: Yes (Death, Life-Threatening, Hospitalization)
  Sender: FDA-Public Use
  Company Number: FR-TAKEDA-2019TUS073716

PATIENT
  Age: 82 Year
  Sex: Female

DRUGS (2)
  1. IXAZOMIB [Suspect]
     Active Substance: IXAZOMIB
     Indication: PLASMA CELL MYELOMA
     Dosage: 12 MILLIGRAM
     Route: 048
     Dates: start: 20191125
  2. DARATUMUMAB [Suspect]
     Active Substance: DARATUMUMAB
     Indication: PLASMA CELL MYELOMA
     Dosage: 736 MILLIGRAM
     Route: 042
     Dates: start: 20191125

REACTIONS (4)
  - Pneumonia aspiration [Fatal]
  - Multiple organ dysfunction syndrome [Fatal]
  - Incorrect dose administered [Fatal]
  - Accidental overdose [Fatal]

NARRATIVE: CASE EVENT DATE: 20191223
